FAERS Safety Report 16995984 (Version 1)
Quarter: 2019Q4

REPORT INFORMATION
  Report Type: Spontaneous
  Country: CA (occurrence: CA)
  Receive Date: 20191105
  Receipt Date: 20191105
  Transmission Date: 20200122
  Serious: Yes (Life-Threatening, Hospitalization, Disabling, Other)
  Sender: FDA-Public Use
  Company Number: CA-ALLERGAN-1944468US

PATIENT
  Sex: Female
  Weight: 65.31 kg

DRUGS (12)
  1. CAMBIA [Concomitant]
     Active Substance: DICLOFENAC POTASSIUM
  2. CRANBERRY                          /01512301/ [Concomitant]
     Active Substance: CRANBERRY
  3. PROPRANOLOL [Concomitant]
     Active Substance: PROPRANOLOL HYDROCHLORIDE
  4. VITAMIN B COMPLEX [Concomitant]
     Active Substance: CYANOCOBALAMIN\DEXPANTHENOL\NIACINAMIDE\PYRIDOXINE HYDROCHLORIDE\RIBOFLAVIN 5^-PHOSPHATE SODIUM\THIAMINE HYDROCHLORIDE\VITAMIN B COMPLEX
  5. VITAMIN D                          /00107901/ [Concomitant]
     Active Substance: ERGOCALCIFEROL
  6. OMEGA                              /00661201/ [Concomitant]
  7. TOPAMAX [Concomitant]
     Active Substance: TOPIRAMATE
  8. ZOMIG [Concomitant]
     Active Substance: ZOLMITRIPTAN
  9. BACLOFEN. [Concomitant]
     Active Substance: BACLOFEN
  10. CALCIUM MAGNESIUM                  /00591201/ [Concomitant]
  11. MELATONIN [Concomitant]
     Active Substance: MELATONIN
  12. BOTOX [Suspect]
     Active Substance: ONABOTULINUMTOXINA
     Indication: PRODUCT USED FOR UNKNOWN INDICATION
     Dosage: 700 UNITS, SINGLE
     Route: 051

REACTIONS (13)
  - Vomiting [Recovering/Resolving]
  - Overdose [Unknown]
  - Loss of personal independence in daily activities [Recovering/Resolving]
  - Dyspnoea [Recovering/Resolving]
  - Anxiety [Recovering/Resolving]
  - Throat tightness [Recovering/Resolving]
  - Mobility decreased [Recovering/Resolving]
  - Dry skin [Recovering/Resolving]
  - Decreased appetite [Recovering/Resolving]
  - Muscle tightness [Recovering/Resolving]
  - Sciatica [Recovering/Resolving]
  - Weight decreased [Recovering/Resolving]
  - Pain [Recovering/Resolving]
